FAERS Safety Report 15093336 (Version 2)
Quarter: 2018Q3

REPORT INFORMATION
  Report Type: Spontaneous
  Country: US (occurrence: US)
  Receive Date: 20180629
  Receipt Date: 20180703
  Transmission Date: 20181010
  Serious: No
  Sender: FDA-Public Use
  Company Number: US-PFIZER INC-2018262160

PATIENT
  Age: 58 Year
  Sex: Male

DRUGS (4)
  1. RITUXAN [Suspect]
     Active Substance: RITUXIMAB
     Indication: ARTHRITIS
     Dosage: UNK
     Dates: start: 2013
  2. METHOTREXATE SODIUM. [Suspect]
     Active Substance: METHOTREXATE SODIUM
     Indication: ARTHRITIS
     Dosage: UNK
     Dates: start: 2013
  3. XELJANZ [Suspect]
     Active Substance: TOFACITINIB CITRATE
     Indication: ARTHRITIS
     Dosage: 5 MG, 2X/DAY
     Dates: start: 2013
  4. PLAQUENIL [Suspect]
     Active Substance: HYDROXYCHLOROQUINE SULFATE
     Indication: ARTHRITIS
     Dosage: UNK
     Dates: start: 2013

REACTIONS (10)
  - Arthralgia [Unknown]
  - Drug effect incomplete [Unknown]
  - Synovitis [Unknown]
  - Joint effusion [Unknown]
  - Treatment noncompliance [Unknown]
  - Joint swelling [Unknown]
  - Joint stiffness [Unknown]
  - Blood calcium decreased [Unknown]
  - Pain [Unknown]
  - Joint noise [Unknown]

NARRATIVE: CASE EVENT DATE: 20161101
